FAERS Safety Report 6796218-3 (Version None)
Quarter: 2010Q2

REPORT INFORMATION
  Report Type: 
  Country: None (occurrence: None)
  Receive Date: 20100624
  Receipt Date: 20100624
  Transmission Date: 20101027
  Serious: Yes (Other)
  Sender: FDA-Public Use
  Company Number: None

PATIENT
  Age: 38 Year
  Sex: Female
  Weight: 56.6996 kg

DRUGS (2)
  1. CYMBALTA [Suspect]
     Indication: HEADACHE
     Dosage: 30 MG Q EVERY OTHER DAY PO
     Route: 048
     Dates: start: 20061221, end: 20100621
  2. CYMBALTA [Suspect]
     Indication: NEURALGIA
     Dosage: 30 MG Q EVERY OTHER DAY PO
     Route: 048
     Dates: start: 20061221, end: 20100621

REACTIONS (5)
  - DISTURBANCE IN ATTENTION [None]
  - DIZZINESS [None]
  - DRUG WITHDRAWAL SYNDROME [None]
  - FATIGUE [None]
  - HEADACHE [None]
